FAERS Safety Report 11329269 (Version 2)
Quarter: 2015Q3

REPORT INFORMATION
  Report Type: Report from Study
  Country: JP (occurrence: JP)
  Receive Date: 20150803
  Receipt Date: 20150825
  Transmission Date: 20151125
  Serious: Yes (Hospitalization, Disabling)
  Sender: FDA-Public Use
  Company Number: JP-ROCHE-1616182

PATIENT
  Age: 65 Year
  Sex: Male
  Weight: 76 kg

DRUGS (2)
  1. METHOXY POLYETHYLENE GLYCOL-EPOETIN BETA [Suspect]
     Active Substance: METHOXY POLYETHYLENE GLYCOL-EPOETIN BETA
     Indication: NEPHROGENIC ANAEMIA
     Route: 042
     Dates: start: 20150618, end: 20150715
  2. FESIN (JAPAN) [Concomitant]
     Active Substance: IRON SUCROSE
     Dosage: DOSAGE IS UNCERTAIN.
     Route: 042

REACTIONS (1)
  - Cerebral infarction [Not Recovered/Not Resolved]

NARRATIVE: CASE EVENT DATE: 20150712
